FAERS Safety Report 16772741 (Version 1)
Quarter: 2019Q3

REPORT INFORMATION
  Report Type: Spontaneous
  Country: US (occurrence: US)
  Receive Date: 20190715
  Receipt Date: 20190715
  Transmission Date: 20191005
  Serious: No
  Sender: FDA-Public Use
  Company Number: None

PATIENT
  Age: 73 Year
  Sex: Male

DRUGS (2)
  1. REPATHA [Suspect]
     Active Substance: EVOLOCUMAB
     Indication: TYPE V HYPERLIPIDAEMIA
     Dosage: ?          OTHER FREQUENCY:EVERY2WKS AS DIRECTED
     Route: 058
     Dates: start: 201902
  2. REPATHA [Suspect]
     Active Substance: EVOLOCUMAB
     Indication: ARTERIOSCLEROSIS CORONARY ARTERY
     Dosage: ?          OTHER FREQUENCY:EVERY2WKS AS DIRECTED
     Route: 058
     Dates: start: 201902

REACTIONS (3)
  - Fatigue [None]
  - Dry skin [None]
  - Dry eye [None]
